FAERS Safety Report 6752617-7 (Version None)
Quarter: 2010Q2

REPORT INFORMATION
  Report Type: 
  Country: None (occurrence: None)
  Receive Date: 20100601
  Receipt Date: 20100601
  Transmission Date: 20101027
  Serious: Yes (Hospitalization, Disabling)
  Sender: FDA-Public Use
  Company Number: None

PATIENT
  Sex: Male
  Weight: 74.3899 kg

DRUGS (1)
  1. LEVAQUIN [Suspect]
     Indication: PNEUMONIA
     Dosage: ONE TABLET DAILY 14 DAYS PO
     Route: 048
     Dates: start: 20100502, end: 20100504

REACTIONS (2)
  - TENDON RUPTURE [None]
  - WHEELCHAIR USER [None]
